FAERS Safety Report 5177422-7 (Version None)
Quarter: 2006Q4

REPORT INFORMATION
  Report Type: 
  Country: None (occurrence: None)
  Receive Date: 20061218
  Receipt Date: 20061020
  Transmission Date: 20070319
  Serious: Yes (Life-Threatening)
  Sender: FDA-Public Use
  Company Number: JP-ABBOTT-06P-087-0347684-00

PATIENT
  Sex: Male

DRUGS (7)
  1. SEVOFLURANE [Suspect]
     Indication: ANAESTHESIA
     Dosage: 0.6 - 1 %
     Route: 055
     Dates: start: 20060422, end: 20060422
  2. PROPOFOL [Concomitant]
     Indication: INDUCTION OF ANAESTHESIA
     Route: 042
     Dates: start: 20060422, end: 20060422
  3. FENTANYL CITRATE [Concomitant]
     Indication: ANALGESIC THERAPY
     Route: 042
     Dates: start: 20060422, end: 20060422
  4. FENTANYL CITRATE [Concomitant]
     Route: 042
     Dates: start: 20060422, end: 20060422
  5. VECURONIUM BROMIDE [Concomitant]
     Indication: INDUCTION OF ANAESTHESIA
     Route: 042
     Dates: start: 20060422, end: 20060422
  6. VECURONIUM BROMIDE [Concomitant]
     Route: 042
     Dates: start: 20060422, end: 20060422
  7. ATROPINE SULFATE [Concomitant]
     Indication: INDUCTION OF ANAESTHESIA
     Route: 042
     Dates: start: 20060422, end: 20060422

REACTIONS (1)
  - ACUTE MYOCARDIAL INFARCTION [None]
